FAERS Safety Report 12914764 (Version 1)
Quarter: 2016Q4

REPORT INFORMATION
  Report Type: Spontaneous
  Country: US (occurrence: US)
  Receive Date: 20161106
  Receipt Date: 20161106
  Transmission Date: 20170207
  Serious: No
  Sender: FDA-Public Use
  Company Number: US-RELYPSA-RLY2016002005

PATIENT
  Sex: Male

DRUGS (11)
  1. ALLOPURINOL. [Concomitant]
     Active Substance: ALLOPURINOL
  2. HUMALOG [Concomitant]
     Active Substance: INSULIN LISPRO
  3. KIONEX [Concomitant]
     Active Substance: SODIUM POLYSTYRENE SULFONATE
  4. VELTASSA [Suspect]
     Active Substance: PATIROMER
     Indication: HYPERKALAEMIA
     Dosage: 8.4 G, QOD
     Route: 048
  5. METOPROLOL. [Concomitant]
     Active Substance: METOPROLOL
  6. CLOPIDOGREL [Concomitant]
     Active Substance: CLOPIDOGREL BISULFATE
  7. LEVEMIR [Concomitant]
     Active Substance: INSULIN DETEMIR
  8. FUROSEMIDE. [Concomitant]
     Active Substance: FUROSEMIDE
  9. SODIUM BICARBONATE. [Concomitant]
     Active Substance: SODIUM BICARBONATE
  10. ATORVASTATIN [Concomitant]
     Active Substance: ATORVASTATIN
  11. NITROSTAT [Concomitant]
     Active Substance: NITROGLYCERIN

REACTIONS (1)
  - Off label use [Unknown]
